FAERS Safety Report 6184890-0 (Version None)
Quarter: 2009Q2

REPORT INFORMATION
  Report Type: 
  Country: None (occurrence: None)
  Receive Date: 20090509
  Receipt Date: 20090428
  Transmission Date: 20091009
  Serious: Yes (Hospitalization)
  Sender: FDA-Public Use
  Company Number: ES-ELI_LILLY_AND_COMPANY-ES200904007032

PATIENT
  Age: 78 Year
  Sex: Female

DRUGS (7)
  1. FORTEO [Suspect]
     Indication: OSTEOPOROSIS
     Dates: start: 20081201, end: 20090201
  2. ENALAPRIL MALEATE [Concomitant]
     Indication: HYPERTENSION
  3. REGULATEN [Concomitant]
     Indication: HYPERTENSION
  4. LYRICA [Concomitant]
     Indication: BONE PAIN
  5. DURAGESIC-100 [Concomitant]
     Indication: OSTEOPOROSIS
  6. PREDNISONE [Concomitant]
     Indication: THROMBOCYTOPENIC PURPURA
  7. CITALOPRAM HYDROBROMIDE [Concomitant]
     Indication: COGNITIVE DISORDER

REACTIONS (15)
  - CHOLECYSTITIS [None]
  - CHOLELITHIASIS [None]
  - COLITIS [None]
  - INJECTION SITE HAEMORRHAGE [None]
  - JAUNDICE [None]
  - MULTI-ORGAN FAILURE [None]
  - MUSCULAR WEAKNESS [None]
  - NOSOCOMIAL INFECTION [None]
  - PANCREATITIS [None]
  - PLATELET COUNT DECREASED [None]
  - PYREXIA [None]
  - RENAL FAILURE [None]
  - SEPSIS [None]
  - SHOCK [None]
  - THROMBOCYTOPENIA [None]
